FAERS Safety Report 11592672 (Version 1)
Quarter: 2015Q4

REPORT INFORMATION
  Report Type: Spontaneous
  Country: US (occurrence: None)
  Receive Date: 20151002
  Receipt Date: 20151002
  Transmission Date: 20160304
  Serious: Yes (Other)
  Sender: FDA-Public Use
  Company Number: None

PATIENT
  Age: 55 Year
  Sex: Female
  Weight: 68.04 kg

DRUGS (8)
  1. MELOXICAM. [Suspect]
     Active Substance: MELOXICAM
     Indication: ARTHRITIS
  2. FLUTICASONE PROPIONATE SPR [Concomitant]
  3. QVAR AER [Concomitant]
  4. PROAIR HFA [Concomitant]
     Active Substance: ALBUTEROL SULFATE
  5. HYDROCHLOROTHIAZIDE. [Concomitant]
     Active Substance: HYDROCHLOROTHIAZIDE
  6. KTABS [Concomitant]
  7. EQUATE ALLERGY RELIEF [Concomitant]
  8. MONTELUKAST [Concomitant]
     Active Substance: MONTELUKAST SODIUM

REACTIONS (8)
  - Heart rate increased [None]
  - Abdominal distension [None]
  - Faeces discoloured [None]
  - Hunger [None]
  - Abdominal discomfort [None]
  - Dizziness [None]
  - Headache [None]
  - Constipation [None]

NARRATIVE: CASE EVENT DATE: 20150920
